FAERS Safety Report 6236313-0 (Version None)
Quarter: 2009Q2

REPORT INFORMATION
  Report Type: 
  Country: None (occurrence: None)
  Receive Date: 20090619
  Receipt Date: 20090610
  Transmission Date: 20091009
  Serious: Yes (Hospitalization)
  Sender: FDA-Public Use
  Company Number: JP-AVENTIS-200911648JP

PATIENT
  Age: 39 Year
  Sex: Female

DRUGS (3)
  1. RILUTEK [Suspect]
     Indication: AMYOTROPHIC LATERAL SCLEROSIS
     Dates: start: 20070531
  2. METHYCOBAL                         /00056201/ [Concomitant]
  3. MAGLAX [Concomitant]

REACTIONS (2)
  - DEPRESSED LEVEL OF CONSCIOUSNESS [None]
  - HEPATITIS FULMINANT [None]
